FAERS Safety Report 25922098 (Version 2)
Quarter: 2025Q4

REPORT INFORMATION
  Report Type: Spontaneous
  Country: EU (occurrence: EU)
  Receive Date: 20251015
  Receipt Date: 20251114
  Transmission Date: 20260118
  Serious: Yes (Hospitalization)
  Sender: ROCHE
  Company Number: None

PATIENT
  Age: 13 Year
  Sex: Female

DRUGS (8)
  1. MABTHERA [Suspect]
     Active Substance: RITUXIMAB
     Indication: Rheumatoid factor positive
     Dosage: 1ST CYCLE ADMINISTERED (1000 MG 2X EVERY 14 DAYS), SUBSEQUENTLY ADMINISTRATION WAS PLANNED EVERY 6 M
     Route: 042
     Dates: start: 20250731, end: 20250818
  2. MABTHERA [Suspect]
     Active Substance: RITUXIMAB
     Indication: Systemic lupus erythematosus
  3. MABTHERA [Suspect]
     Active Substance: RITUXIMAB
     Indication: Juvenile idiopathic arthritis
  4. PREDNISONE [Concomitant]
     Active Substance: PREDNISONE
  5. CALTRATE [Concomitant]
     Active Substance: CALCIUM CARBONATE
  6. OMEPRAZOLE [Concomitant]
     Active Substance: OMEPRAZOLE
  7. XELJANZ [Concomitant]
     Active Substance: TOFACITINIB CITRATE
  8. PLAQUENIL [Concomitant]
     Active Substance: HYDROXYCHLOROQUINE SULFATE

REACTIONS (3)
  - Erythema [Recovering/Resolving]
  - Pyrexia [Recovering/Resolving]
  - Eosinophilia [Recovering/Resolving]

NARRATIVE: CASE EVENT DATE: 20250819
